FAERS Safety Report 15754971 (Version 1)
Quarter: 2018Q4

REPORT INFORMATION
  Report Type: Spontaneous
  Country: NL (occurrence: NL)
  Receive Date: 20181224
  Receipt Date: 20181224
  Transmission Date: 20190205
  Serious: Yes (Other)
  Sender: FDA-Public Use
  Company Number: NL-LUPIN PHARMACEUTICALS INC.-2018-08958

PATIENT
  Age: 62 Year
  Sex: Male

DRUGS (12)
  1. FLUDROCORTISONE [Interacting]
     Active Substance: FLUDROCORTISONE
     Dosage: 2 FOLD INCREASED DOSE
     Route: 065
  2. ISONIAZID. [Concomitant]
     Active Substance: ISONIAZID
     Indication: ADRENAL GLAND TUBERCULOSIS
     Dosage: UNK
     Route: 065
  3. HYDROCORTISONE. [Interacting]
     Active Substance: HYDROCORTISONE
     Dosage: 3 FOLD INCREASED DOSE
     Route: 065
  4. PYRAZINAMIDE. [Concomitant]
     Active Substance: PYRAZINAMIDE
     Indication: TUBERCULOSIS
  5. HYDROCORTISONE. [Interacting]
     Active Substance: HYDROCORTISONE
     Indication: ADRENAL INSUFFICIENCY
     Dosage: UNK
     Route: 065
  6. RIFAMPIN. [Interacting]
     Active Substance: RIFAMPIN
     Indication: TUBERCULOSIS
  7. ISONIAZID. [Concomitant]
     Active Substance: ISONIAZID
     Indication: TUBERCULOSIS
  8. ETHAMBUTOL [Concomitant]
     Active Substance: ETHAMBUTOL HYDROCHLORIDE
     Indication: TUBERCULOSIS
  9. RIFAMPIN. [Suspect]
     Active Substance: RIFAMPIN
     Indication: ADRENAL GLAND TUBERCULOSIS
     Dosage: UNK
     Route: 065
  10. PYRAZINAMIDE. [Concomitant]
     Active Substance: PYRAZINAMIDE
     Indication: ADRENAL GLAND TUBERCULOSIS
     Dosage: UNK
     Route: 065
  11. ETHAMBUTOL [Concomitant]
     Active Substance: ETHAMBUTOL HYDROCHLORIDE
     Indication: ADRENAL GLAND TUBERCULOSIS
     Dosage: UNK
     Route: 065
  12. FLUDROCORTISONE [Interacting]
     Active Substance: FLUDROCORTISONE
     Indication: ADRENAL INSUFFICIENCY
     Dosage: UNK
     Route: 065

REACTIONS (2)
  - Addison^s disease [Recovered/Resolved]
  - Drug interaction [Unknown]
